FAERS Safety Report 8969904 (Version 2)
Quarter: 2013Q1

REPORT INFORMATION
  Report Type: Report from Study
  Country: JP (occurrence: JP)
  Receive Date: 20121217
  Receipt Date: 20130117
  Transmission Date: 20140127
  Serious: Yes (Death)
  Sender: FDA-Public Use
  Company Number: JP-ROCHE-1168741

PATIENT
  Sex: Female

DRUGS (2)
  1. METHOXY POLYETHYLENE GLYCOL-EPOETIN BETA [Suspect]
     Indication: NEPHROGENIC ANAEMIA
     Route: 042
     Dates: start: 20111209, end: 20120509
  2. ADALAT [Concomitant]
     Indication: NEPHROSCLEROSIS
     Route: 048
     Dates: end: 20120702

REACTIONS (2)
  - Infection [Fatal]
  - Renal impairment [Fatal]
